FAERS Safety Report 9871503 (Version 5)
Quarter: 2014Q2

REPORT INFORMATION
  Report Type: Report from Study
  Country: US (occurrence: US)
  Receive Date: 20140205
  Receipt Date: 20140422
  Transmission Date: 20141212
  Serious: Yes (Hospitalization)
  Sender: FDA-Public Use
  Company Number: US-JNJFOC-20130416457

PATIENT
  Age: 70 Year
  Sex: Male
  Weight: 111.13 kg

DRUGS (19)
  1. IBRUTINIB [Suspect]
     Indication: PLASMA CELL MYELOMA
     Route: 048
     Dates: end: 20130423
  2. IBRUTINIB [Suspect]
     Indication: PLASMA CELL MYELOMA
     Route: 048
     Dates: start: 20130130
  3. IBRUTINIB [Suspect]
     Indication: PLASMA CELL MYELOMA
     Route: 048
     Dates: start: 20130213
  4. DEXAMETHASONE [Suspect]
     Indication: PRODUCT USED FOR UNKNOWN INDICATION
     Route: 048
     Dates: start: 20130202, end: 20130420
  5. ACTIGALL [Concomitant]
     Indication: PROPHYLAXIS
     Route: 048
     Dates: start: 20130205
  6. CORTEF [Concomitant]
     Indication: INFLAMMATION
     Route: 048
     Dates: start: 20130205
  7. XANAX [Concomitant]
     Indication: ANXIETY
     Route: 048
     Dates: start: 20130205
  8. BACTRIM [Concomitant]
     Indication: UPPER RESPIRATORY TRACT INFECTION
     Route: 048
     Dates: start: 20130205
  9. MIDODRINE [Concomitant]
     Indication: HYPOTENSION
     Route: 048
     Dates: start: 20130205
  10. TESSALON PERLES [Concomitant]
     Indication: COUGH
     Route: 048
     Dates: start: 20130426
  11. TESSALON PERLES [Concomitant]
     Indication: COUGH
     Route: 048
     Dates: start: 20130205, end: 20130227
  12. PRILOSEC [Concomitant]
     Indication: GASTROOESOPHAGEAL REFLUX DISEASE
     Route: 048
     Dates: start: 20130205
  13. PRILOSEC [Concomitant]
     Indication: DYSPEPSIA
     Route: 048
     Dates: start: 20130205
  14. CALCIUM [Concomitant]
     Indication: NUTRITIONAL SUPPLEMENTATION
     Route: 048
     Dates: start: 201203
  15. LORTAB [Concomitant]
     Indication: BONE PAIN
     Dates: start: 20121106
  16. MULTIVITAMINS [Concomitant]
     Indication: NUTRITIONAL SUPPLEMENTATION
     Route: 048
     Dates: start: 20130205
  17. LYRICA [Concomitant]
     Indication: NEUROPATHY PERIPHERAL
     Route: 048
     Dates: start: 20110406
  18. ZOFRAN [Concomitant]
     Indication: NAUSEA
     Route: 048
     Dates: start: 20130205
  19. COMPAZINE [Concomitant]
     Indication: NAUSEA
     Route: 048
     Dates: start: 20130205

REACTIONS (1)
  - Bronchopulmonary aspergillosis [Not Recovered/Not Resolved]
